FAERS Safety Report 4936480-2 (Version None)
Quarter: 2006Q1

REPORT INFORMATION
  Report Type: 
  Country: None (occurrence: None)
  Receive Date: 20060307
  Receipt Date: 20050112
  Transmission Date: 20060701
  Serious: Yes (Hospitalization, Disabling)
  Sender: FDA-Public Use
  Company Number: US-MERCK-0501USA01862

PATIENT
  Age: 45 Year
  Sex: Male
  Weight: 84 kg

DRUGS (1)
  1. VIOXX [Suspect]
     Indication: LIMB INJURY
     Route: 048
     Dates: start: 20010101, end: 20010101

REACTIONS (5)
  - CEREBROVASCULAR ACCIDENT [None]
  - EPISTAXIS [None]
  - MALAISE [None]
  - PANCREATIC DISORDER [None]
  - THROMBOSIS [None]
